FAERS Safety Report 24173653 (Version 1)
Quarter: 2024Q3

REPORT INFORMATION
  Report Type: Report from Study
  Country: US (occurrence: None)
  Receive Date: 20240805
  Receipt Date: 20240805
  Transmission Date: 20241017
  Serious: Yes (Other)
  Sender: ASTRAZENECA
  Company Number: 2022A388745

PATIENT
  Sex: Female

DRUGS (1)
  1. SAPHNELO [Suspect]
     Active Substance: ANIFROLUMAB-FNIA
     Indication: Systemic lupus erythematosus
     Dosage: 300 MG/2 ML
     Route: 042
     Dates: start: 20220826

REACTIONS (3)
  - Monoplegia [Unknown]
  - Hypoaesthesia [Unknown]
  - Infusion site pain [Unknown]
